FAERS Safety Report 18769020 (Version 1)
Quarter: 2021Q1

REPORT INFORMATION
  Report Type: Spontaneous
  Country: US (occurrence: US)
  Receive Date: 20210121
  Receipt Date: 20210121
  Transmission Date: 20210419
  Serious: No
  Sender: FDA-Public Use
  Company Number: US-PFIZER INC-2021041359

PATIENT

DRUGS (1)
  1. PREMPRO [Suspect]
     Active Substance: ESTROGENS, CONJUGATED\MEDROXYPROGESTERONE ACETATE
     Dosage: UNK

REACTIONS (9)
  - Rhinorrhoea [Unknown]
  - Aggression [Unknown]
  - Hyperhidrosis [Unknown]
  - Hot flush [Unknown]
  - Emotional disorder [Unknown]
  - Anger [Unknown]
  - Crying [Unknown]
  - Abdominal distension [Unknown]
  - Headache [Unknown]
